FAERS Safety Report 5696768-7 (Version None)
Quarter: 2008Q2

REPORT INFORMATION
  Report Type: 
  Country: None (occurrence: None)
  Receive Date: 20080408
  Receipt Date: 20061023
  Transmission Date: 20081010
  Serious: No
  Sender: FDA-Public Use
  Company Number: US-BAYER-US-2006-032414

PATIENT
  Age: 38 Year
  Sex: Female
  Weight: 54 kg

DRUGS (2)
  1. YASMIN [Suspect]
     Indication: ENDOMETRIOSIS
     Dates: start: 20061022
  2. PREVACID [Concomitant]

REACTIONS (5)
  - DYSGEUSIA [None]
  - DYSPEPSIA [None]
  - EYE IRRITATION [None]
  - NASAL DISCOMFORT [None]
  - OESOPHAGEAL PAIN [None]
